FAERS Safety Report 13376377 (Version 8)
Quarter: 2017Q3

REPORT INFORMATION
  Report Type: Spontaneous
  Country: US (occurrence: US)
  Receive Date: 20170328
  Receipt Date: 20170801
  Transmission Date: 20171127
  Serious: Yes (Other)
  Sender: FDA-Public Use
  Company Number: US-HORIZON-ACT-0060-2017

PATIENT
  Age: 33 Year
  Sex: Female

DRUGS (3)
  1. VORICONAZOLE. [Concomitant]
     Active Substance: VORICONAZOLE
  2. ACTIMMUNE [Suspect]
     Active Substance: INTERFERON GAMMA-1B
     Indication: CHRONIC GRANULOMATOUS DISEASE
     Dosage: 0.4 ML THREE TIMES WEEKLY; MWF
     Route: 058
     Dates: start: 20170217
  3. BACTRIM [Concomitant]
     Active Substance: SULFAMETHOXAZOLE\TRIMETHOPRIM

REACTIONS (8)
  - Arthralgia [Unknown]
  - Injection site erythema [Unknown]
  - Headache [Not Recovered/Not Resolved]
  - Influenza like illness [Recovering/Resolving]
  - Injection site pain [Unknown]
  - Injection site bruising [Unknown]
  - Abscess intestinal [Unknown]
  - Constipation [Unknown]

NARRATIVE: CASE EVENT DATE: 20170320
